FAERS Safety Report 4678844-0 (Version None)
Quarter: 2005Q2

REPORT INFORMATION
  Report Type: 
  Country: None (occurrence: None)
  Receive Date: 20050531
  Receipt Date: 20050518
  Transmission Date: 20051028
  Serious: Yes (Disabling, Other)
  Sender: FDA-Public Use
  Company Number: 2005044553

PATIENT
  Age: 70 Year
  Sex: Female
  Weight: 70.3075 kg

DRUGS (3)
  1. DETROL LA [Suspect]
     Indication: HYPERTONIC BLADDER
     Dosage: 4 MG (4 MG,D AILY), ORAL
     Route: 048
  2. ASPIRIN [Concomitant]
  3. CONJUGATED ESTROGENS [Concomitant]

REACTIONS (3)
  - DRY MOUTH [None]
  - RETINAL HAEMORRHAGE [None]
  - SCOTOMA [None]
